FAERS Safety Report 16692971 (Version 2)
Quarter: 2019Q4

REPORT INFORMATION
  Report Type: Spontaneous
  Country: ES (occurrence: ES)
  Receive Date: 20190812
  Receipt Date: 20191122
  Transmission Date: 20200122
  Serious: Yes (Other)
  Sender: FDA-Public Use
  Company Number: ES-AMGEN-ESPSP2019125486

PATIENT
  Age: 57 Year
  Sex: Female
  Weight: 50 kg

DRUGS (6)
  1. PROLIA [Suspect]
     Active Substance: DENOSUMAB
     Indication: OSTEOPOROSIS
     Dosage: 60 MILLIGRAM, Q6MO
     Route: 058
     Dates: start: 20190114
  2. CALCIUM [Concomitant]
     Active Substance: CALCIUM
     Dosage: UNK
  3. HIDROFEROL [Concomitant]
     Active Substance: CALCIFEDIOL
     Dosage: 0.266 MILLIGRAM, QMO
  4. ARMOLIPID PLUS [Concomitant]
     Active Substance: DIETARY SUPPLEMENT
     Dosage: UNK
  5. DEMILOS [Concomitant]
     Active Substance: CALCIUM CARBONATE\CHOLECALCIFEROL
     Dosage: 600 MILLIGRAM, QD
  6. RED RICE YEAST [Concomitant]
     Active Substance: DIETARY SUPPLEMENT
     Indication: BLOOD CHOLESTEROL INCREASED
     Dosage: UNK UNK, QD
     Dates: start: 2017

REACTIONS (18)
  - Haematochezia [Unknown]
  - Eyelid disorder [Unknown]
  - Nail disorder [Unknown]
  - Constipation [Not Recovered/Not Resolved]
  - Bone pain [Recovered/Resolved]
  - Chills [Unknown]
  - Pyrexia [Unknown]
  - Hot flush [Not Recovered/Not Resolved]
  - Dermatitis [Unknown]
  - Dry skin [Unknown]
  - Sciatica [Unknown]
  - Muscle rigidity [Unknown]
  - Dysuria [Unknown]
  - Influenza [Recovered/Resolved]
  - Blood calcium increased [Unknown]
  - Autoimmune thyroiditis [Not Recovered/Not Resolved]
  - Muscle spasms [Unknown]
  - Blood cholesterol increased [Unknown]

NARRATIVE: CASE EVENT DATE: 2019
